FAERS Safety Report 14856326 (Version 2)
Quarter: 2020Q2

REPORT INFORMATION
  Report Type: Spontaneous
  Country: US (occurrence: US)
  Receive Date: 20180507
  Receipt Date: 20200505
  Transmission Date: 20200713
  Serious: No
  Sender: FDA-Public Use
  Company Number: US-ROCHE-2025164

PATIENT
  Sex: Female

DRUGS (6)
  1. IRON [Concomitant]
     Active Substance: IRON
     Route: 065
  2. ESBRIET [Suspect]
     Active Substance: PIRFENIDONE
     Dosage: WITH MEALS
     Route: 048
     Dates: start: 20180911
  3. PANTOPRAZOLE [Concomitant]
     Active Substance: PANTOPRAZOLE
     Route: 065
  4. SIMVASTATIN. [Concomitant]
     Active Substance: SIMVASTATIN
     Route: 065
  5. ANORO ELLIPTA [Concomitant]
     Active Substance: UMECLIDINIUM BROMIDE\VILANTEROL TRIFENATATE
     Dosage: 62.5 TO 25 M
     Route: 065
  6. ESBRIET [Suspect]
     Active Substance: PIRFENIDONE
     Indication: IDIOPATHIC PULMONARY FIBROSIS
     Route: 048
     Dates: start: 20170516

REACTIONS (3)
  - Hot flush [Unknown]
  - Fatigue [Unknown]
  - Pain [Unknown]
